FAERS Safety Report 22168863 (Version 4)
Quarter: 2023Q2

REPORT INFORMATION
  Report Type: Spontaneous
  Country: JP (occurrence: JP)
  Receive Date: 20230403
  Receipt Date: 20230515
  Transmission Date: 20230721
  Serious: No
  Sender: FDA-Public Use
  Company Number: JP-JNJFOC-20230348913

PATIENT
  Age: 88 Year
  Sex: Male
  Weight: 45.2 kg

DRUGS (2)
  1. SIMPONI [Suspect]
     Active Substance: GOLIMUMAB
     Indication: Rheumatoid arthritis
     Route: 058
  2. SIMPONI [Suspect]
     Active Substance: GOLIMUMAB
     Indication: Rheumatoid arthritis
     Dosage: STRENGTH:-50.00 MG / 0.50 ML
     Route: 058
     Dates: start: 20230316, end: 20230316

REACTIONS (3)
  - Device deployment issue [Unknown]
  - Subcutaneous haematoma [Recovered/Resolved]
  - Needle issue [Unknown]

NARRATIVE: CASE EVENT DATE: 20230316
